FAERS Safety Report 21184436 (Version 1)
Quarter: 2022Q3

REPORT INFORMATION
  Report Type: Report from Study
  Country: IT (occurrence: IT)
  Receive Date: 20220808
  Receipt Date: 20220808
  Transmission Date: 20221027
  Serious: Yes (Hospitalization)
  Sender: FDA-Public Use
  Company Number: IT-BAYER-2022A108293

PATIENT
  Age: 2 Year
  Sex: Female

DRUGS (2)
  1. CIPROFLOXACIN [Suspect]
     Active Substance: CIPROFLOXACIN
     Indication: Infection
     Route: 048
  2. PIPERACILLIN [Suspect]
     Active Substance: PIPERACILLIN
     Indication: Infection

REACTIONS (9)
  - Drug reaction with eosinophilia and systemic symptoms [None]
  - Pyrexia [None]
  - Rash maculo-papular [None]
  - Dermatitis exfoliative [None]
  - Hepatic cytolysis [None]
  - Haemophagocytic lymphohistiocytosis [None]
  - Aplasia pure red cell [None]
  - Bicytopenia [None]
  - Neutropenia [None]
